FAERS Safety Report 4763776-X (Version None)
Quarter: 2005Q3

REPORT INFORMATION
  Report Type: 
  Country: None (occurrence: None)
  Receive Date: 20050908
  Receipt Date: 20050831
  Transmission Date: 20060218
  Serious: Yes (Other)
  Sender: FDA-Public Use
  Company Number: PHEH2005US09815

PATIENT
  Age: 65 Year
  Sex: Female
  Weight: 72 kg

DRUGS (8)
  1. ZOMETA [Suspect]
     Indication: METASTASES TO BONE
     Dosage: 4 MG EVERY 28 DAYS
     Dates: start: 20040225, end: 20050705
  2. TAXOTERE [Concomitant]
  3. NEULASTA [Concomitant]
  4. NEUPOGEN [Concomitant]
  5. NAVELBINE [Concomitant]
  6. ZOLOFT [Concomitant]
  7. ZOFRAN [Concomitant]
  8. DECADRON [Concomitant]

REACTIONS (5)
  - ASEPTIC NECROSIS BONE [None]
  - OSTEONECROSIS [None]
  - PAIN [None]
  - TOOTH EXTRACTION [None]
  - WOUND DRAINAGE [None]
